FAERS Safety Report 5489317-X (Version None)
Quarter: 2007Q4

REPORT INFORMATION
  Report Type: 
  Country: None (occurrence: None)
  Receive Date: 20071005
  Receipt Date: 20070629
  Transmission Date: 20080405
  Serious: No
  Sender: FDA-Public Use
  Company Number: PHEH2007US08975

PATIENT
  Age: 80 Year
  Sex: Female

DRUGS (1)
  1. TEKTURNA [Suspect]
     Indication: HYPERTENSION
     Dosage: 300 MG, QD, ORAL
     Route: 048
     Dates: start: 20070529

REACTIONS (4)
  - PAIN IN EXTREMITY [None]
  - SWOLLEN TONGUE [None]
  - TOOTH INJURY [None]
  - TOOTH LOSS [None]
